FAERS Safety Report 6393088-2 (Version None)
Quarter: 2009Q4

REPORT INFORMATION
  Report Type: 
  Country: None (occurrence: None)
  Receive Date: 20091008
  Receipt Date: 20090930
  Transmission Date: 20100525
  Serious: No
  Sender: FDA-Public Use
  Company Number: VE-ROCHE-659757

PATIENT
  Sex: Female
  Weight: 58 kg

DRUGS (1)
  1. ROACCUTANE [Suspect]
     Indication: ACNE
     Dosage: LAST DOSE ON 01 AUG 2009
     Route: 048
     Dates: start: 20090201, end: 20090602

REACTIONS (2)
  - NO ADVERSE EVENT [None]
  - PREGNANCY [None]
